FAERS Safety Report 21722220 (Version 2)
Quarter: 2023Q1

REPORT INFORMATION
  Report Type: Report from Study
  Country: PL (occurrence: None)
  Receive Date: 20221213
  Receipt Date: 20230102
  Transmission Date: 20230418
  Serious: Yes (Death)
  Sender: FDA-Public Use
  Company Number: PL-ROCHE-3239314

PATIENT
  Age: 80 Year
  Sex: Male

DRUGS (12)
  1. FARICIMAB [Suspect]
     Active Substance: FARICIMAB
     Indication: Diabetic retinal oedema
     Dosage: ON 21/OCT/2021, HE RECEIVED HIS SUBSEQUENT DOSE OF FARICIMAB.?ON 30/AUG/2022 AT 4:54 PM, HE RECEIVED
     Route: 050
     Dates: start: 20210513
  2. GLUCOBAY [Concomitant]
     Active Substance: ACARBOSE
     Indication: Diabetes mellitus
     Route: 048
     Dates: start: 20090505
  3. ALLOPURINOL [Concomitant]
     Active Substance: ALLOPURINOL
     Indication: Gout
     Route: 048
     Dates: start: 20170604
  4. NEBILENIN [Concomitant]
     Indication: Hypertension
     Route: 048
     Dates: start: 20170604
  5. ZOCOR [Concomitant]
     Active Substance: SIMVASTATIN
     Indication: Hypercholesterolaemia
     Route: 048
     Dates: start: 20170604
  6. INDAPAMIDE [Concomitant]
     Active Substance: INDAPAMIDE
     Indication: Hypertension
     Route: 048
     Dates: start: 20170604
  7. FINASTERIDE [Concomitant]
     Active Substance: FINASTERIDE
     Indication: Benign prostatic hyperplasia
     Route: 048
     Dates: start: 20170604
  8. TORSEMIDE [Concomitant]
     Active Substance: TORSEMIDE
     Indication: Benign prostatic hyperplasia
     Route: 048
     Dates: start: 20170604
  9. TAMSULOSIN HYDROCHLORIDE [Concomitant]
     Active Substance: TAMSULOSIN HYDROCHLORIDE
     Indication: Benign prostatic hyperplasia
     Route: 048
     Dates: start: 20170604
  10. ACARD [Concomitant]
     Indication: Hypertension
     Route: 048
     Dates: start: 20170604
  11. CYCLO 3 FORT [Concomitant]
     Active Substance: ASCORBIC ACID\HESPERIDIN METHYLCHALCONE\RUSCUS ACULEATUS ROOT
     Indication: Hypertension
     Route: 048
     Dates: start: 20170604
  12. FERROUS SULFATE\FOLIC ACID [Concomitant]
     Active Substance: FERROUS SULFATE\FOLIC ACID
     Indication: Anaemia
     Route: 048
     Dates: start: 20190828

REACTIONS (1)
  - Angiopathy [Fatal]

NARRATIVE: CASE EVENT DATE: 20220922
